FAERS Safety Report 6434092-5 (Version None)
Quarter: 2009Q4

REPORT INFORMATION
  Report Type: 
  Country: None (occurrence: None)
  Receive Date: 20091110
  Receipt Date: 20090608
  Transmission Date: 20100525
  Serious: No
  Sender: FDA-Public Use
  Company Number: US-ASTRAZENECA-2009SE10341

PATIENT

DRUGS (1)
  1. PRILOSEC OTC [Suspect]
     Dosage: UNK DOSE, UNK FREQ FOR 2 DAYS
     Route: 048
     Dates: start: 20090606, end: 20090607

REACTIONS (2)
  - BLOOD PRESSURE INCREASED [None]
  - FEELING ABNORMAL [None]
